FAERS Safety Report 9395631 (Version 1)
Quarter: 2013Q3

REPORT INFORMATION
  Report Type: Spontaneous
  Country: BR (occurrence: BR)
  Receive Date: 20130711
  Receipt Date: 20130711
  Transmission Date: 20140515
  Serious: Yes (Other)
  Sender: FDA-Public Use
  Company Number: PHHY2013BR073793

PATIENT
  Sex: Female

DRUGS (2)
  1. TEGRETOL CR [Suspect]
     Dosage: UNK UKN, UNK
  2. CARBAMAZEPINE [Suspect]
     Dosage: UNK UKN, UNK

REACTIONS (3)
  - Convulsion [Unknown]
  - Diarrhoea [Unknown]
  - Headache [Unknown]
